FAERS Safety Report 13377093 (Version 2)
Quarter: 2017Q2

REPORT INFORMATION
  Report Type: Spontaneous
  Country: US (occurrence: US)
  Receive Date: 20170328
  Receipt Date: 20170621
  Transmission Date: 20170830
  Serious: No
  Sender: FDA-Public Use
  Company Number: US-TEVA-749546ACC

PATIENT
  Sex: Female

DRUGS (1)
  1. COPAXONE [Suspect]
     Active Substance: GLATIRAMER ACETATE
     Indication: MULTIPLE SCLEROSIS
     Dosage: SOLUTION
     Route: 058
     Dates: start: 201703

REACTIONS (2)
  - Abdominal pain upper [Not Recovered/Not Resolved]
  - Musculoskeletal stiffness [Unknown]
